FAERS Safety Report 20830864 (Version 1)
Quarter: 2022Q2

REPORT INFORMATION
  Report Type: Spontaneous
  Country: US (occurrence: US)
  Receive Date: 20220515
  Receipt Date: 20220515
  Transmission Date: 20220721
  Serious: Yes (Hospitalization, Other)
  Sender: FDA-Public Use
  Company Number: US-drreddys-SPO/USA/22/0149928

PATIENT
  Age: 8 Decade
  Sex: Male

DRUGS (1)
  1. PANTOPRAZOLE SODIUM [Suspect]
     Active Substance: PANTOPRAZOLE SODIUM
     Indication: Gastritis

REACTIONS (3)
  - Dementia [Recovering/Resolving]
  - Anaemia macrocytic [Recovered/Resolved]
  - Vitamin B12 deficiency [Recovered/Resolved]
